FAERS Safety Report 21801653 (Version 1)
Quarter: 2022Q4

REPORT INFORMATION
  Report Type: Spontaneous
  Country: US (occurrence: US)
  Receive Date: 20221230
  Receipt Date: 20221230
  Transmission Date: 20230113
  Serious: No
  Sender: FDA-Public Use
  Company Number: US-Prasco Laboratories-PRAS20220393

PATIENT
  Sex: Female

DRUGS (2)
  1. ESTRADIOL [Suspect]
     Active Substance: ESTRADIOL
     Indication: Atrophic vulvovaginitis
     Dosage: UNKNOWN
     Route: 067
     Dates: start: 20221222, end: 20221225
  2. ESTRADIOL [Suspect]
     Active Substance: ESTRADIOL
     Dosage: UNKNOWN
     Route: 067
     Dates: start: 20221227, end: 20221229

REACTIONS (3)
  - Vulvovaginal swelling [Not Recovered/Not Resolved]
  - Vulvovaginal burning sensation [Not Recovered/Not Resolved]
  - Urinary incontinence [Not Recovered/Not Resolved]

NARRATIVE: CASE EVENT DATE: 20221222
